FAERS Safety Report 8539520-7 (Version None)
Quarter: 2012Q3

REPORT INFORMATION
  Report Type: 
  Country: None (occurrence: None)
  Receive Date: 20120726
  Receipt Date: 20120719
  Transmission Date: 20120928
  Serious: Yes (Other)
  Sender: FDA-Public Use
  Company Number: US-BAYER-2012-073529

PATIENT
  Sex: Female

DRUGS (5)
  1. GLUCOSAMIN [Concomitant]
  2. VITAMIN TAB [Concomitant]
  3. MULTI-VITAMINS [Concomitant]
  4. ENHALER NOS [Concomitant]
  5. YASMIN [Suspect]
     Indication: CONTRACEPTION
     Dosage: UNK
     Dates: start: 20020101, end: 20110801

REACTIONS (1)
  - CEREBROVASCULAR ACCIDENT [None]
